FAERS Safety Report 20430688 (Version 1)
Quarter: 2022Q1

REPORT INFORMATION
  Report Type: Spontaneous
  Country: US (occurrence: US)
  Receive Date: 20220204
  Receipt Date: 20220204
  Transmission Date: 20220423
  Serious: No
  Sender: FDA-Public Use
  Company Number: US-TAKEDA-2022TUS007303

PATIENT
  Age: 5 Year
  Sex: Female

DRUGS (1)
  1. VYVANSE [Suspect]
     Active Substance: LISDEXAMFETAMINE DIMESYLATE
     Indication: Attention deficit hyperactivity disorder
     Route: 065

REACTIONS (8)
  - Muscle twitching [Recovered/Resolved]
  - Tongue disorder [Recovered/Resolved]
  - Muscle fatigue [Recovered/Resolved]
  - Sitting disability [Recovered/Resolved]
  - Musculoskeletal stiffness [Recovered/Resolved]
  - Dry mouth [Recovered/Resolved]
  - Logorrhoea [Recovered/Resolved]
  - Off label use [Unknown]

NARRATIVE: CASE EVENT DATE: 20220129
